APPROVED DRUG PRODUCT: OXACILLIN SODIUM
Active Ingredient: OXACILLIN SODIUM
Strength: EQ 2GM BASE/VIAL
Dosage Form/Route: INJECTABLE;INJECTION
Application: A091246 | Product #002
Applicant: SAGENT PHARMACEUTICALS INC
Approved: Mar 30, 2012 | RLD: No | RS: No | Type: DISCN